FAERS Safety Report 9675844 (Version 2)
Quarter: 2013Q4

REPORT INFORMATION
  Report Type: Spontaneous
  Country: US (occurrence: US)
  Receive Date: 20131107
  Receipt Date: 20131118
  Transmission Date: 20140711
  Serious: Yes (Other)
  Sender: FDA-Public Use
  Company Number: US-GLAXOSMITHKLINE-A1048579A

PATIENT
  Sex: Male

DRUGS (2)
  1. COREG [Suspect]
     Indication: PRODUCT USED FOR UNKNOWN INDICATION
  2. LAMICTAL [Suspect]
     Indication: PRODUCT USED FOR UNKNOWN INDICATION

REACTIONS (3)
  - Brain injury [Unknown]
  - Convulsion [Unknown]
  - Myocardial infarction [Unknown]
